FAERS Safety Report 13665582 (Version 1)
Quarter: 2017Q2

REPORT INFORMATION
  Report Type: Spontaneous
  Country: US (occurrence: US)
  Receive Date: 20170619
  Receipt Date: 20170619
  Transmission Date: 20170830
  Serious: No
  Sender: FDA-Public Use
  Company Number: US-BAYER-2017-107199

PATIENT
  Age: 75 Year
  Sex: Female
  Weight: 56.96 kg

DRUGS (2)
  1. ALEVE [Suspect]
     Active Substance: NAPROXEN SODIUM
     Indication: PAIN
     Dosage: 3 DF, UNK: SHE TOOK AN ALEVE THIS MORNING AND MISTAKENLY JUST TOOK TWO MORE A FEW MINUTES AGO
  2. ALEVE [Suspect]
     Active Substance: NAPROXEN SODIUM
     Indication: PAIN
     Dosage: 2 DF, QD
     Route: 048
     Dates: start: 201701, end: 20170602

REACTIONS (2)
  - Product use issue [Unknown]
  - Hypertension [None]

NARRATIVE: CASE EVENT DATE: 20170602
